FAERS Safety Report 8026063-2 (Version None)
Quarter: 2012Q1

REPORT INFORMATION
  Report Type: 
  Country: None (occurrence: None)
  Receive Date: 20120105
  Receipt Date: 20110725
  Transmission Date: 20120608
  Serious: No
  Sender: FDA-Public Use
  Company Number: US-ABBOTT-11P-163-0841857-00

PATIENT
  Sex: Female

DRUGS (5)
  1. CHORIONIC GONADOTROPIN [Suspect]
     Indication: PRODUCT USED FOR UNKNOWN INDICATION
  2. CRESTOR [Concomitant]
     Indication: BLOOD CHOLESTEROL INCREASED
     Dates: start: 20110101
  3. SYNTHROID [Suspect]
     Indication: THYROIDECTOMY
     Dates: start: 20110501, end: 20110501
  4. SYNTHROID [Suspect]
     Dosage: TWO DAYS A WEEK
  5. SYNTHROID [Suspect]
     Dosage: FIVE DAYS A WEEK
     Dates: start: 20110501

REACTIONS (2)
  - NERVOUSNESS [None]
  - ALOPECIA [None]
